FAERS Safety Report 6380919-5 (Version None)
Quarter: 2009Q3

REPORT INFORMATION
  Report Type: 
  Country: None (occurrence: None)
  Receive Date: 20090929
  Receipt Date: 20090925
  Transmission Date: 20100115
  Serious: Yes (Other)
  Sender: FDA-Public Use
  Company Number: B0595426A

PATIENT
  Sex: Female

DRUGS (1)
  1. AUGMENTIN [Suspect]
     Indication: PHARYNGOTONSILLITIS
     Route: 065
     Dates: start: 20090924, end: 20090924

REACTIONS (3)
  - DIZZINESS [None]
  - NAUSEA [None]
  - TACHYCARDIA [None]
